FAERS Safety Report 7731171-7 (Version None)
Quarter: 2011Q3

REPORT INFORMATION
  Report Type: 
  Country: None (occurrence: None)
  Receive Date: 20110906
  Receipt Date: 20110906
  Transmission Date: 20111222
  Serious: Yes (Hospitalization, Disabling)
  Sender: FDA-Public Use
  Company Number: None

PATIENT
  Age: 30 Year
  Sex: Female
  Weight: 91.6 kg

DRUGS (5)
  1. VANCOMYCIN [Suspect]
     Indication: STAPHYLOCOCCAL BACTERAEMIA
     Dosage: 1 GM
     Route: 042
     Dates: start: 20110827, end: 20110830
  2. VANCOMYCIN [Suspect]
     Indication: SEPTIC EMBOLUS
     Dosage: 1 GM
     Route: 042
     Dates: start: 20110827, end: 20110830
  3. VANCOMYCIN [Suspect]
     Indication: ENDOCARDITIS
     Dosage: 1 GM
     Route: 042
     Dates: start: 20110827, end: 20110830
  4. VANCOMYCIN [Concomitant]
     Indication: STAPHYLOCOCCAL BACTERAEMIA
     Dosage: 1 GM
     Route: 042
     Dates: start: 20110830, end: 20110831
  5. VANCOMYCIN [Concomitant]
     Indication: SEPTIC EMBOLUS
     Dosage: 1 GM
     Route: 042
     Dates: start: 20110830, end: 20110831

REACTIONS (3)
  - DRUG LEVEL INCREASED [None]
  - DRUG LEVEL DECREASED [None]
  - RENAL FAILURE ACUTE [None]
